FAERS Safety Report 12544353 (Version 1)
Quarter: 2016Q3

REPORT INFORMATION
  Report Type: Spontaneous
  Country: US (occurrence: US)
  Receive Date: 20160711
  Receipt Date: 20160711
  Transmission Date: 20161109
  Serious: No
  Sender: FDA-Public Use
  Company Number: US-PFIZER INC-2016299989

PATIENT
  Age: 57 Year
  Sex: Female
  Weight: 72.57 kg

DRUGS (4)
  1. CARISOPRODOL. [Concomitant]
     Active Substance: CARISOPRODOL
     Indication: MUSCLE RELAXANT THERAPY
     Dosage: 350 MG, AT NIGHT
     Route: 048
  2. AMBIEN [Concomitant]
     Active Substance: ZOLPIDEM TARTRATE
     Indication: SLEEP DISORDER
     Dosage: 10 MG, AT NIGHT
     Route: 048
  3. XELJANZ XR [Suspect]
     Active Substance: TOFACITINIB CITRATE
     Indication: RHEUMATOID ARTHRITIS
     Dosage: 11 MG, 1X/DAY
     Route: 048
  4. PERCOCET 10 [Concomitant]
     Indication: PAIN
     Dosage: UP TO 4 TABLETS DAILY BUT USUALLY JUST ONE OR TWO.  SOMETIMES SHE TOOK A HALF TABLET

REACTIONS (5)
  - Sinus headache [Not Recovered/Not Resolved]
  - Visual acuity reduced [Not Recovered/Not Resolved]
  - Dry mouth [Not Recovered/Not Resolved]
  - Bedridden [Unknown]
  - Insomnia [Unknown]

NARRATIVE: CASE EVENT DATE: 201606
